FAERS Safety Report 13069750 (Version 1)
Quarter: 2016Q4

REPORT INFORMATION
  Report Type: Spontaneous
  Country: MX (occurrence: MX)
  Receive Date: 20161228
  Receipt Date: 20161228
  Transmission Date: 20170207
  Serious: Yes (Hospitalization)
  Sender: FDA-Public Use
  Company Number: MX-ARBOR PHARMACEUTICALS, LLC-MX-2016ARB002421

PATIENT
  Age: 31 Year
  Sex: Female

DRUGS (1)
  1. LAMOTRIGINE. [Suspect]
     Active Substance: LAMOTRIGINE
     Indication: EPILEPSY
     Dosage: UNK

REACTIONS (9)
  - Eosinophilia [Recovered/Resolved]
  - Enteritis [Recovered/Resolved]
  - Pseudomembranous colitis [Recovered/Resolved]
  - Drug reaction with eosinophilia and systemic symptoms [Recovered/Resolved]
  - Diarrhoea haemorrhagic [Recovered/Resolved]
  - Dermatitis [Recovered/Resolved]
  - Rash maculo-papular [Recovered/Resolved]
  - Body temperature abnormal [Recovered/Resolved]
  - White blood cells stool [Recovered/Resolved]
